FAERS Safety Report 23403819 (Version 2)
Quarter: 2024Q1

REPORT INFORMATION
  Report Type: Spontaneous
  Country: ES (occurrence: ES)
  Receive Date: 20240116
  Receipt Date: 20240119
  Transmission Date: 20240410
  Serious: No
  Sender: FDA-Public Use
  Company Number: ES-009507513-2401ESP006307

PATIENT
  Sex: Male

DRUGS (6)
  1. DAPTOMYCIN [Suspect]
     Active Substance: DAPTOMYCIN
     Indication: Bacteraemia
  2. DAPTOMYCIN [Suspect]
     Active Substance: DAPTOMYCIN
     Indication: Pseudomonas infection
  3. DAPTOMYCIN [Suspect]
     Active Substance: DAPTOMYCIN
     Indication: Necrotising fasciitis streptococcal
  4. AMOXICILLIN\CLAVULANATE POTASSIUM [Suspect]
     Active Substance: AMOXICILLIN\CLAVULANATE POTASSIUM
     Indication: Bacteraemia
  5. AMOXICILLIN\CLAVULANATE POTASSIUM [Suspect]
     Active Substance: AMOXICILLIN\CLAVULANATE POTASSIUM
     Indication: Pseudomonas infection
  6. AMOXICILLIN\CLAVULANATE POTASSIUM [Suspect]
     Active Substance: AMOXICILLIN\CLAVULANATE POTASSIUM
     Indication: Necrotising fasciitis streptococcal

REACTIONS (1)
  - Product use in unapproved indication [Unknown]
